FAERS Safety Report 5673339-X (Version None)
Quarter: 2008Q1

REPORT INFORMATION
  Report Type: 
  Country: None (occurrence: None)
  Receive Date: 20080319
  Receipt Date: 20080308
  Transmission Date: 20080703
  Serious: Yes (Hospitalization)
  Sender: FDA-Public Use
  Company Number: CA-ROCHE-552723

PATIENT
  Age: 54 Year
  Sex: Female

DRUGS (4)
  1. ACCUTANE [Suspect]
     Indication: ACNE
     Dosage: STRENGTH: 10 MG CAPSULE
     Route: 048
     Dates: start: 20040427, end: 20040701
  2. ACCUTANE [Suspect]
     Dosage: STRENGTH: 10 MG CAPSULE
     Route: 048
     Dates: start: 20060306, end: 20060601
  3. ACCUTANE [Suspect]
     Dosage: STRENGTH REPORTED AS 40 MG CAPSULE.
     Route: 048
     Dates: start: 20060306, end: 20060601
  4. MINOCYCLINE HCL [Concomitant]
     Indication: ACNE
     Route: 048
     Dates: start: 20051201, end: 20060101

REACTIONS (10)
  - ANXIETY [None]
  - ASTHENIA [None]
  - DEPRESSION [None]
  - DRY SKIN [None]
  - HAEMOGLOBIN DECREASED [None]
  - HERPES ZOSTER [None]
  - HYSTERECTOMY [None]
  - LIPOMA [None]
  - OOPHORECTOMY BILATERAL [None]
  - ORAL DISORDER [None]
